FAERS Safety Report 17996536 (Version 1)
Quarter: 2020Q3

REPORT INFORMATION
  Report Type: Spontaneous
  Country: US (occurrence: US)
  Receive Date: 20200708
  Receipt Date: 20200708
  Transmission Date: 20201103
  Serious: Yes (Hospitalization)
  Sender: FDA-Public Use
  Company Number: US-FRESENIUS MEDICAL CARE RENAL THERAPIES GROUP-FMC-2006-000668

PATIENT
  Age: 67 Year
  Sex: Male
  Weight: 90 kg

DRUGS (24)
  1. AMLODIPINE [Concomitant]
     Active Substance: AMLODIPINE BESYLATE
  2. DELFLEX WITH DEXTROSE 2.5% LOW MAGNESIUM LOW CALCIUM [Suspect]
     Active Substance: CALCIUM CHLORIDE\DEXTROSE\MAGNESIUM CHLORIDE\SODIUM CHLORIDE\SODIUM LACTATE
     Indication: END STAGE RENAL DISEASE
     Dosage: FILL VOLUME 2300 ML, 5 EXCHANGES, LAST FILL 1500 ML, DAYTIME EXCHANGE 2000  ML
     Route: 033
  3. CLOPIDOGREL [Concomitant]
     Active Substance: CLOPIDOGREL BISULFATE
  4. DOXAZOSIN [Concomitant]
     Active Substance: DOXAZOSIN MESYLATE
  5. OMEPRAZOLE. [Concomitant]
     Active Substance: OMEPRAZOLE
  6. RENVELA [Concomitant]
     Active Substance: SEVELAMER CARBONATE
  7. DELFLEX WITH DEXTROSE 4.25% LOW MAGNESIUM LOW CALCIUM [Suspect]
     Active Substance: CALCIUM CHLORIDE\DEXTROSE\MAGNESIUM CHLORIDE\SODIUM CHLORIDE\SODIUM LACTATE
     Indication: END STAGE RENAL DISEASE
     Dosage: FILL VOLUME 2300 ML, 5 EXCHANGES, LAST FILL 1500 ML, DAYTIME EXCHANGE 2000  ML
     Route: 033
  8. ASPIRIN. [Concomitant]
     Active Substance: ASPIRIN
  9. CARVEDILOL. [Concomitant]
     Active Substance: CARVEDILOL
  10. VALSARTAN. [Concomitant]
     Active Substance: VALSARTAN
  11. MECLIZINE [Concomitant]
     Active Substance: MECLIZINE HYDROCHLORIDE
  12. CLONIDINE. [Concomitant]
     Active Substance: CLONIDINE
  13. LANTUS [Concomitant]
     Active Substance: INSULIN GLARGINE
  14. LYRICA [Concomitant]
     Active Substance: PREGABALIN
  15. PRAVASTATIN. [Concomitant]
     Active Substance: PRAVASTATIN
  16. DILTIAZEM. [Concomitant]
     Active Substance: DILTIAZEM
  17. DELFLEX WITH DEXTROSE 1.5% LOW MAGNESIUM LOW CALCIUM [Suspect]
     Active Substance: CALCIUM CHLORIDE\DEXTROSE\MAGNESIUM CHLORIDE\SODIUM CHLORIDE\SODIUM LACTATE
     Indication: END STAGE RENAL DISEASE
     Dosage: FILL VOLUME 2300 ML, 5 EXCHANGES, LAST FILL 1500 ML, DAYTIME EXCHANGE 2000  ML
     Route: 033
  18. LACTULOSE. [Concomitant]
     Active Substance: LACTULOSE
  19. LASIX [Concomitant]
     Active Substance: FUROSEMIDE
  20. NOVOLOG [Concomitant]
     Active Substance: INSULIN ASPART
  21. ERGOCALCIFEROL. [Concomitant]
     Active Substance: ERGOCALCIFEROL
  22. CALCITRIOL. [Concomitant]
     Active Substance: CALCITRIOL
  23. GENTAMYCIN [Concomitant]
     Active Substance: GENTAMICIN
  24. SENSIPAR [Concomitant]
     Active Substance: CINACALCET HYDROCHLORIDE

REACTIONS (2)
  - Peritonitis bacterial [Recovering/Resolving]
  - Swelling [Unknown]
